FAERS Safety Report 23748267 (Version 2)
Quarter: 2024Q3

REPORT INFORMATION
  Report Type: Spontaneous
  Country: US (occurrence: US)
  Receive Date: 20240416
  Receipt Date: 20240710
  Transmission Date: 20241017
  Serious: No
  Sender: SANOFI AVENTIS
  Company Number: US-SA-2024SA070665

PATIENT
  Age: 12 Year
  Sex: Male

DRUGS (5)
  1. DUPIXENT [Suspect]
     Active Substance: DUPILUMAB
     Indication: Dermatitis atopic
     Dosage: 200 MG, QOW
     Route: 058
  2. TACROLIMUS [Concomitant]
     Active Substance: TACROLIMUS
     Dosage: PRN
  3. TRIAMCINOLONE [Concomitant]
     Active Substance: TRIAMCINOLONE
     Dosage: PRN
  4. CLOBETASOL [Concomitant]
     Active Substance: CLOBETASOL
     Dosage: PRN
  5. MELATONIN [Concomitant]
     Active Substance: MELATONIN

REACTIONS (6)
  - Rash macular [Unknown]
  - Asthma [Recovered/Resolved]
  - Hyperhidrosis [Unknown]
  - Skin irritation [Unknown]
  - Scratch [Recovered/Resolved]
  - Pruritus [Not Recovered/Not Resolved]
